FAERS Safety Report 15098556 (Version 2)
Quarter: 2018Q4

REPORT INFORMATION
  Report Type: Spontaneous
  Country: US (occurrence: US)
  Receive Date: 20180702
  Receipt Date: 20181218
  Transmission Date: 20190204
  Serious: Yes (Hospitalization)
  Sender: FDA-Public Use
  Company Number: US-CELGENEUS-USA-20180609280

PATIENT
  Sex: Female

DRUGS (2)
  1. OTEZLA [Suspect]
     Active Substance: APREMILAST
     Dosage: 30  MILLIGRAM
     Route: 048
     Dates: start: 20180601
  2. OTEZLA [Suspect]
     Active Substance: APREMILAST
     Indication: PSORIASIS
     Dosage: 60  MILLIGRAM
     Route: 048

REACTIONS (2)
  - Open globe injury [Not Recovered/Not Resolved]
  - Fall [Recovered/Resolved with Sequelae]
